FAERS Safety Report 7087338-7 (Version None)
Quarter: 2010Q4

REPORT INFORMATION
  Report Type: 
  Country: None (occurrence: None)
  Receive Date: 20101108
  Receipt Date: 20101028
  Transmission Date: 20110411
  Serious: Yes (Life-Threatening, Other)
  Sender: FDA-Public Use
  Company Number: IE-BIOGENIDEC-2010BI037482

PATIENT
  Age: 45 Year
  Sex: Female
  Weight: 52 kg

DRUGS (6)
  1. TYSABRI [Suspect]
     Indication: MULTIPLE SCLEROSIS
     Route: 042
     Dates: start: 20080302, end: 20090616
  2. CALCIUM AND VITAMIN D [Concomitant]
     Indication: PROPHYLAXIS
  3. EFFEXOR XR [Concomitant]
     Indication: DEPRESSION
     Dates: start: 20060101
  4. RITALIN [Concomitant]
     Indication: DEPRESSION
     Dates: start: 20060101
  5. DETRUSITOL [Concomitant]
     Indication: BLADDER DISORDER
     Dates: start: 20080101
  6. ZOTON [Concomitant]
     Indication: GASTRIC DISORDER
     Dates: start: 20080101

REACTIONS (1)
  - BREAST CANCER [None]
